FAERS Safety Report 9799838 (Version 1)
Quarter: 2014Q1

REPORT INFORMATION
  Report Type: Report from Study
  Country: IN (occurrence: IN)
  Receive Date: 20140106
  Receipt Date: 20140106
  Transmission Date: 20141002
  Serious: Yes (Hospitalization, Other)
  Sender: FDA-Public Use
  Company Number: PHHY2014IN001005

PATIENT
  Age: 63 Year
  Sex: Male

DRUGS (2)
  1. EXELON PATCH [Suspect]
     Indication: DEMENTIA ALZHEIMER^S TYPE
     Dosage: 4.6 MG, DAILY (5 CM PATCH)
     Route: 062
     Dates: start: 201301
  2. EXELON PATCH [Suspect]
     Dosage: 13.3 MG, DAILY (15 CM PATCH)
     Route: 062

REACTIONS (5)
  - Pneumonia aspiration [Unknown]
  - Cough decreased [Unknown]
  - Muscular weakness [Unknown]
  - Vomiting [Unknown]
  - Psychomotor hyperactivity [Unknown]
